FAERS Safety Report 5799213-6 (Version None)
Quarter: 2008Q3

REPORT INFORMATION
  Report Type: 
  Country: None (occurrence: None)
  Receive Date: 20080701
  Receipt Date: 20080616
  Transmission Date: 20090109
  Serious: Yes (Death)
  Sender: FDA-Public Use
  Company Number: 2008AL007093

PATIENT
  Age: 91 Year
  Sex: Female

DRUGS (1)
  1. DIGOXIN           (AMIDE) [Suspect]
     Indication: HEART RATE INCREASED
     Dosage: 0.125MG DAILY PO
     Route: 048
     Dates: end: 20080328

REACTIONS (5)
  - CARDIAC DISORDER [None]
  - CONFUSIONAL STATE [None]
  - DYSSTASIA [None]
  - GENERAL PHYSICAL HEALTH DETERIORATION [None]
  - UNRESPONSIVE TO STIMULI [None]
